FAERS Safety Report 7906633-X (Version None)
Quarter: 2011Q4

REPORT INFORMATION
  Report Type: 
  Country: None (occurrence: None)
  Receive Date: 20111109
  Receipt Date: 20111109
  Transmission Date: 20120403
  Serious: No
  Sender: FDA-Public Use
  Company Number: None

PATIENT
  Age: 69 Year
  Sex: Female
  Weight: 77.1115 kg

DRUGS (1)
  1. BUTALBITAL ACETAMINOPHEN CAFFEINE [Suspect]
     Indication: BACK DISORDER
     Dosage: 1 3X'S A DAY
     Dates: start: 20101201

REACTIONS (6)
  - SOMNOLENCE [None]
  - INCREASED APPETITE [None]
  - FREQUENT BOWEL MOVEMENTS [None]
  - ASTHENIA [None]
  - HYPERSENSITIVITY [None]
  - BALANCE DISORDER [None]
